FAERS Safety Report 20456267 (Version 1)
Quarter: 2022Q1

REPORT INFORMATION
  Report Type: Spontaneous
  Country: US (occurrence: US)
  Receive Date: 20220210
  Receipt Date: 20220210
  Transmission Date: 20220424
  Serious: Yes (Death, Hospitalization)
  Sender: FDA-Public Use
  Company Number: US-JNJFOC-20220214143

PATIENT
  Sex: Male

DRUGS (6)
  1. DURAGESIC [Suspect]
     Active Substance: FENTANYL
     Indication: Product used for unknown indication
     Route: 048
  2. DURAGESIC [Suspect]
     Active Substance: FENTANYL
     Route: 045
  3. ALPRAZOLAM [Suspect]
     Active Substance: ALPRAZOLAM
     Indication: Product used for unknown indication
     Route: 048
  4. ALPRAZOLAM [Suspect]
     Active Substance: ALPRAZOLAM
     Route: 045
  5. COCAINE [Suspect]
     Active Substance: COCAINE
     Indication: Product used for unknown indication
     Route: 048
  6. COCAINE [Suspect]
     Active Substance: COCAINE
     Route: 045

REACTIONS (3)
  - Intentional product misuse [Fatal]
  - Toxicity to various agents [Fatal]
  - Intentional product use issue [Fatal]
